FAERS Safety Report 4618792-5 (Version None)
Quarter: 2005Q1

REPORT INFORMATION
  Report Type: 
  Country: None (occurrence: None)
  Receive Date: 20050323
  Receipt Date: 20050310
  Transmission Date: 20050727
  Serious: Yes (Hospitalization)
  Sender: FDA-Public Use
  Company Number: A0416353A

PATIENT
  Age: 61 Year
  Sex: Female
  Weight: 70.7611 kg

DRUGS (26)
  1. AVANDIA [Suspect]
     Indication: DIABETES MELLITUS NON-INSULIN-DEPENDENT
     Dosage: ORAL
     Route: 048
     Dates: start: 19990825, end: 20010101
  2. AVANDIA [Suspect]
     Indication: DIABETES MELLITUS
     Dates: start: 19990825, end: 20010101
  3. CARVEDILOL [Concomitant]
  4. AMIODARONE [Concomitant]
  5. NATEGLINIDE [Concomitant]
  6. METFORMIN HCL [Concomitant]
  7. THYROXINE SODIUM [Concomitant]
  8. LEVOFLOXACIN [Concomitant]
  9. CONJUGATED ESTROGENS [Concomitant]
  10. ASPIRIN [Concomitant]
  11. BETA-BLOCKER [Concomitant]
  12. ENALAPRIL MALEATE [Concomitant]
  13. FRUSEMIDE [Concomitant]
  14. PARACETAMOL [Concomitant]
  15. IBUPROFEN [Concomitant]
  16. ATORVASTATIN CALCIUM [Concomitant]
  17. SIMVASTATIN [Concomitant]
  18. NADOLOL [Concomitant]
  19. POTASSIUM SALT [Concomitant]
  20. GLIPIZIDE [Concomitant]
  21. WARFARIN SODIUM [Concomitant]
  22. INT./LONG-ACTING INSULIN [Concomitant]
  23. NICOTINIC ACID [Concomitant]
  24. ISOSORBIDE MONONITRATE [Concomitant]
  25. PRAVASTATIN SODIUM [Concomitant]
  26. SERTRALINE HYDROCHLORIDE [Concomitant]

REACTIONS (12)
  - ATRIAL FIBRILLATION [None]
  - CARDIAC FAILURE CONGESTIVE [None]
  - CHEST PAIN [None]
  - HYPERKINESIA [None]
  - HYPOTENSION [None]
  - LEFT VENTRICULAR FAILURE [None]
  - MULTIPLE ALLERGIES [None]
  - MYOCARDIAL INFARCTION [None]
  - NORMOCHROMIC NORMOCYTIC ANAEMIA [None]
  - PULMONARY HYPERTENSION [None]
  - VENTRICULAR HYPOKINESIA [None]
  - WEIGHT INCREASED [None]
